FAERS Safety Report 7390064-8 (Version None)
Quarter: 2011Q2

REPORT INFORMATION
  Report Type: 
  Country: None (occurrence: None)
  Receive Date: 20110401
  Receipt Date: 20110208
  Transmission Date: 20111010
  Serious: Yes (Death, Other)
  Sender: FDA-Public Use
  Company Number: US-BAYER-200934531NA

PATIENT
  Sex: Female
  Weight: 36.281 kg

DRUGS (17)
  1. METOPROLOL [Concomitant]
  2. AMIODARONE [Concomitant]
     Dosage: UNK
     Dates: start: 20041105
  3. COUMADIN [Concomitant]
  4. HEPARIN SODIUM [Concomitant]
     Dosage: 29000 U, UNK
     Dates: start: 20041105
  5. TRASYLOL [Suspect]
     Indication: MITRAL VALVE REPAIR
  6. TRASYLOL [Suspect]
     Indication: CARDIAC ABLATION
     Dosage: 200 ML
     Route: 042
     Dates: start: 20041105, end: 20041105
  7. FRESH FROZEN PLASMA [Concomitant]
     Dosage: 2 U, UNK
     Dates: start: 20041105
  8. GLYBURIDE [Concomitant]
  9. TRASYLOL [Suspect]
     Indication: ATRIAL FIBRILLATION
  10. VERSED [Concomitant]
     Dosage: 15 MG, UNK
     Dates: start: 20041105
  11. VANCOMYCIN [Concomitant]
     Dosage: 1 G, UNK
     Dates: start: 20041105
  12. TRASYLOL [Suspect]
     Indication: TRICUSPID VALVE REPAIR
  13. LOTENSIN [Concomitant]
  14. LASIX [Concomitant]
  15. DOBUTREX [Concomitant]
     Dosage: 3MCG/KG/MIN
     Dates: start: 20041105
  16. HUMAN RED BLOOD CELLS [Concomitant]
     Dosage: 2 U, UNK
     Dates: start: 20041105
  17. LANOXIN [Concomitant]

REACTIONS (12)
  - ANXIETY [None]
  - INJURY [None]
  - DEATH [None]
  - RENAL INJURY [None]
  - STRESS [None]
  - MULTI-ORGAN FAILURE [None]
  - RENAL FAILURE [None]
  - EMOTIONAL DISTRESS [None]
  - FEAR [None]
  - PAIN [None]
  - RENAL IMPAIRMENT [None]
  - UNEVALUABLE EVENT [None]
